FAERS Safety Report 20025486 (Version 1)
Quarter: 2021Q4

REPORT INFORMATION
  Report Type: Report from Study
  Country: US (occurrence: US)
  Receive Date: 20211102
  Receipt Date: 20211102
  Transmission Date: 20220303
  Serious: Yes (Hospitalization)
  Sender: FDA-Public Use
  Company Number: US-MYLANLABS-2021M1080013

PATIENT
  Age: 74 Year
  Sex: Male

DRUGS (3)
  1. AMIODARONE [Suspect]
     Active Substance: AMIODARONE
     Indication: Ventricular tachycardia
     Dosage: 200 [UNIT NOT STATED] TWICE DAILY, BID
     Route: 065
  2. CARVEDILOL [Suspect]
     Active Substance: CARVEDILOL
     Indication: Ventricular tachycardia
     Dosage: 6.25 [UNIT NOT STATED] TWICE DAILY, BID
     Route: 065
  3. RANOLAZINE [Suspect]
     Active Substance: RANOLAZINE
     Indication: Ventricular tachycardia
     Dosage: 500 [UNIT NOT STATED] TWICE DAILY, BID
     Route: 065

REACTIONS (1)
  - Drug ineffective [Unknown]
